FAERS Safety Report 21909152 (Version 1)
Quarter: 2023Q1

REPORT INFORMATION
  Report Type: Spontaneous
  Country: US (occurrence: None)
  Receive Date: 20230124
  Receipt Date: 20230124
  Transmission Date: 20230417
  Serious: Yes (Death)
  Sender: FDA-Public Use
  Company Number: None

PATIENT
  Age: 76 Year
  Sex: Female
  Weight: 84.37 kg

DRUGS (57)
  1. KISQALI [Suspect]
     Active Substance: RIBOCICLIB
     Indication: HER2 positive breast cancer
     Dosage: OTHER FREQUENCY : 3W, 1W OFF;?
  2. KISQALI [Suspect]
     Active Substance: RIBOCICLIB
     Indication: HER2 negative breast cancer
  3. KISQALI [Suspect]
     Active Substance: RIBOCICLIB
     Indication: Breast cancer stage IV
  4. A-DHA VITAMIN [Concomitant]
  5. ACETIC ACID EAR DROM [Concomitant]
  6. TROSPIUM CHLORIDE [Concomitant]
     Active Substance: TROSPIUM CHLORIDE
  7. ACT DRY MOUTH [Concomitant]
  8. ALEVE [Concomitant]
     Active Substance: NAPROXEN SODIUM
  9. ALKA-SELTZER [Concomitant]
     Active Substance: ANHYDROUS CITRIC ACID\ASPIRIN\SODIUM BICARBONATE
  10. ALLEGRA [Concomitant]
     Active Substance: FEXOFENADINE HYDROCHLORIDE
  11. ALPHA LIPOIC ACID [Concomitant]
     Active Substance: .ALPHA.-LIPOIC ACID
  12. BENZONATATE [Concomitant]
     Active Substance: BENZONATATE
  13. BIOTENE PBF [Concomitant]
     Active Substance: SODIUM FLUORIDE
  14. BIOTIN [Concomitant]
     Active Substance: BIOTIN
  15. BISACODYL [Concomitant]
     Active Substance: BISACODYL
  16. BUPROPION [Concomitant]
     Active Substance: BUPROPION
  17. CALCIUM [Concomitant]
     Active Substance: CALCIUM
  18. CANNABIDIOL [Concomitant]
     Active Substance: CANNABIDIOL
  19. CALCIUM [Concomitant]
     Active Substance: CALCIUM
  20. CANNABIDIOL [Concomitant]
     Active Substance: CANNABIDIOL
  21. CANNABIDIOL\HERBALS [Concomitant]
     Active Substance: CANNABIDIOL\HERBALS
  22. CERIVA [Concomitant]
  23. CLARITIN [Concomitant]
     Active Substance: LORATADINE
  24. COLLAGEN PEPTIDES [Concomitant]
  25. FISH OIL [Concomitant]
     Active Substance: FISH OIL
  26. VITAMIN C [Concomitant]
     Active Substance: ASCORBIC ACID
  27. DELSYM [Concomitant]
     Active Substance: DEXTROMETHORPHAN
  28. DIAZEPAM [Concomitant]
     Active Substance: DIAZEPAM
  29. DIFLUCAN [Concomitant]
     Active Substance: FLUCONAZOLE
  30. DOCUSATE [Concomitant]
     Active Substance: DOCUSATE
  31. FEXOFENADIN HCI [Concomitant]
  32. FLUTICASONE PROPIONATE [Concomitant]
     Active Substance: FLUTICASONE PROPIONATE
  33. CANNABIS SATIVA SEED OIL\HERBALS [Concomitant]
     Active Substance: CANNABIS SATIVA SEED OIL\HERBALS
  34. IMITREX [Concomitant]
     Active Substance: SUMATRIPTAN SUCCINATE
  35. LETROZOLE [Concomitant]
     Active Substance: LETROZOLE
  36. DIETARY SUPPLEMENT [Concomitant]
     Active Substance: DIETARY SUPPLEMENT
  37. LOTEMAX [Concomitant]
     Active Substance: LOTEPREDNOL ETABONATE
  38. MAGNESIUM HYDROXIDE [Concomitant]
     Active Substance: MAGNESIUM HYDROXIDE
  39. METAMUCIL [Concomitant]
     Active Substance: PLANTAGO SEED
  40. METHYLPREDNISOLONE [Concomitant]
     Active Substance: METHYLPREDNISOLONE
  41. NEULASTA [Concomitant]
     Active Substance: PEGFILGRASTIM
  42. ONDANSETRON [Concomitant]
     Active Substance: ONDANSETRON
  43. PANTOPRAZOLE [Concomitant]
     Active Substance: PANTOPRAZOLE
  44. PEPTO-BISMOL [Concomitant]
     Active Substance: BISMUTH SUBSALICYLATE
  45. PREVIDENT [Concomitant]
  46. PROCHLORPEARZINE MALEATE [Concomitant]
  47. REFRESH TEARS OPHTHALMIC [Concomitant]
  48. NEULASTA [Concomitant]
     Active Substance: PEGFILGRASTIM
  49. PANTOPRAZOLE SODIUM [Concomitant]
     Active Substance: PANTOPRAZOLE SODIUM
  50. RESTASIS [Concomitant]
     Active Substance: CYCLOSPORINE
  51. RISPERDAL [Concomitant]
     Active Substance: RISPERIDONE
  52. SUMATRIPTAN [Concomitant]
     Active Substance: SUMATRIPTAN
  53. TYLENOL [Concomitant]
     Active Substance: ACETAMINOPHEN
  54. ULTRAFLORA IMMUNE HEALTH [Concomitant]
  55. VESICARE [Concomitant]
     Active Substance: SOLIFENACIN SUCCINATE
  56. VIVISCAL [Concomitant]
  57. XGEVA [Concomitant]
     Active Substance: DENOSUMAB

REACTIONS (1)
  - Death [None]
